FAERS Safety Report 22133475 (Version 1)
Quarter: 2023Q1

REPORT INFORMATION
  Report Type: Spontaneous
  Country: AR (occurrence: AR)
  Receive Date: 20230324
  Receipt Date: 20230324
  Transmission Date: 20230417
  Serious: Yes (Other)
  Sender: FDA-Public Use
  Company Number: AR-NOVITIUMPHARMA-2023ARNVP00362

PATIENT
  Age: 53 Year
  Sex: Female

DRUGS (2)
  1. LEVOCARNITINE [Suspect]
     Active Substance: LEVOCARNITINE
     Indication: Weight decreased
     Route: 048
  2. TYROSINE [Concomitant]
     Active Substance: TYROSINE
     Indication: Weight decreased

REACTIONS (1)
  - Hyperthyroidism [Recovered/Resolved]
